FAERS Safety Report 14315299 (Version 1)
Quarter: 2017Q4

REPORT INFORMATION
  Report Type: Spontaneous
  Country: DE (occurrence: DE)
  Receive Date: 20171221
  Receipt Date: 20171221
  Transmission Date: 20180321
  Serious: Yes (Death)
  Sender: FDA-Public Use
  Company Number: DE-EAGLE PHARMACEUTICALS, INC.-DE-2017EAG000157

PATIENT
  Age: 53 Year
  Sex: Male

DRUGS (2)
  1. DOCETAXEL. [Suspect]
     Active Substance: DOCETAXEL
     Indication: PROSTATE CANCER METASTATIC
     Dosage: 75 MG/M2
     Route: 065
  2. RADIOTHERAPY [Suspect]
     Active Substance: RADIATION THERAPY
     Indication: PROSTATE CANCER METASTATIC
     Dosage: 225AC-PSMA-617 ALPHA-RADIATION THERAPY, 100KBQ/KG

REACTIONS (1)
  - Neutropenia [Fatal]
